FAERS Safety Report 20503202 (Version 1)
Quarter: 2022Q1

REPORT INFORMATION
  Report Type: Report from Study
  Country: US (occurrence: None)
  Receive Date: 20220222
  Receipt Date: 20220222
  Transmission Date: 20220423
  Serious: Yes (Other)
  Sender: FDA-Public Use
  Company Number: 2022A047037

PATIENT
  Age: 65 Year
  Sex: Female

DRUGS (46)
  1. DURVALUMAB [Suspect]
     Active Substance: DURVALUMAB
     Indication: Endometrial cancer
     Dosage: 1120 MG
     Route: 042
     Dates: start: 20210414, end: 20210414
  2. DURVALUMAB [Suspect]
     Active Substance: DURVALUMAB
     Indication: Endometrial cancer
     Dosage: 1120 MG
     Route: 042
     Dates: start: 20210505, end: 20210505
  3. DURVALUMAB [Suspect]
     Active Substance: DURVALUMAB
     Indication: Endometrial cancer
     Dosage: 1120 MG
     Route: 042
     Dates: start: 20210526, end: 20210526
  4. DURVALUMAB [Suspect]
     Active Substance: DURVALUMAB
     Indication: Endometrial cancer
     Dosage: 1120 MG
     Route: 042
     Dates: start: 20210616, end: 20210616
  5. DURVALUMAB [Suspect]
     Active Substance: DURVALUMAB
     Indication: Endometrial cancer
     Dosage: 1120 MG
     Route: 042
     Dates: start: 20210707, end: 20210707
  6. DURVALUMAB [Suspect]
     Active Substance: DURVALUMAB
     Indication: Endometrial cancer
     Dosage: 1120 MG
     Route: 042
     Dates: start: 20210728, end: 20210728
  7. DURVALUMAB [Suspect]
     Active Substance: DURVALUMAB
     Indication: Endometrial cancer
     Dosage: 1500 MG
     Route: 042
     Dates: start: 20210818, end: 20210818
  8. DURVALUMAB [Suspect]
     Active Substance: DURVALUMAB
     Indication: Endometrial cancer
     Dosage: 1500 MG
     Route: 042
     Dates: start: 20211013, end: 20211013
  9. DURVALUMAB [Suspect]
     Active Substance: DURVALUMAB
     Indication: Endometrial cancer
     Dosage: 1500 MG
     Route: 042
     Dates: start: 20211110, end: 20211110
  10. DURVALUMAB [Suspect]
     Active Substance: DURVALUMAB
     Indication: Endometrial cancer
     Dosage: 1500 MG
     Route: 042
     Dates: start: 20211208, end: 20211208
  11. OLAPARIB [Suspect]
     Active Substance: OLAPARIB
     Indication: Endometrial cancer
     Dosage: 150 MG
     Route: 048
     Dates: start: 20210818, end: 20210821
  12. OLAPARIB [Suspect]
     Active Substance: OLAPARIB
     Indication: Endometrial cancer
     Dosage: 150 MG
     Route: 048
     Dates: start: 20210822, end: 20210822
  13. OLAPARIB [Suspect]
     Active Substance: OLAPARIB
     Indication: Endometrial cancer
     Dosage: 150 MG
     Route: 048
     Dates: start: 20211013
  14. CARBOPLATIN [Concomitant]
     Active Substance: CARBOPLATIN
     Indication: Endometrial cancer
     Dosage: 709.0 MG
     Route: 042
     Dates: start: 20210414, end: 20210414
  15. CARBOPLATIN [Concomitant]
     Active Substance: CARBOPLATIN
     Indication: Endometrial cancer
     Dosage: 614.0 MG
     Route: 042
     Dates: start: 20210505, end: 20210505
  16. CARBOPLATIN [Concomitant]
     Active Substance: CARBOPLATIN
     Indication: Endometrial cancer
     Dosage: 692.0 MG
     Route: 042
     Dates: start: 20210526, end: 20210526
  17. CARBOPLATIN [Concomitant]
     Active Substance: CARBOPLATIN
     Indication: Endometrial cancer
     Dosage: 614.0 MG
     Route: 042
     Dates: start: 20210616, end: 20210616
  18. CARBOPLATIN [Concomitant]
     Active Substance: CARBOPLATIN
     Indication: Endometrial cancer
     Dosage: 691 MG
     Route: 042
     Dates: start: 20210707, end: 20210707
  19. CARBOPLATIN [Concomitant]
     Active Substance: CARBOPLATIN
     Indication: Endometrial cancer
     Dosage: 691 MG
     Route: 042
     Dates: start: 20210728, end: 20210728
  20. PACLITAXEL [Concomitant]
     Active Substance: PACLITAXEL
     Indication: Endometrial cancer
     Dosage: 125 MG/M2
     Route: 042
     Dates: start: 20210414, end: 20210414
  21. PACLITAXEL [Concomitant]
     Active Substance: PACLITAXEL
     Indication: Endometrial cancer
     Dosage: 125 MG/M2
     Route: 042
     Dates: start: 20210505, end: 20210505
  22. PACLITAXEL [Concomitant]
     Active Substance: PACLITAXEL
     Indication: Endometrial cancer
     Dosage: 125 MG/M2
     Route: 042
     Dates: start: 20210616, end: 20210616
  23. PACLITAXEL [Concomitant]
     Active Substance: PACLITAXEL
     Indication: Endometrial cancer
     Dosage: 125 MG/M2
     Route: 042
     Dates: start: 20210728, end: 20210728
  24. ALBUTEROL SULFATE [Concomitant]
     Active Substance: ALBUTEROL SULFATE
     Dosage: 2 PUFF AS NEEDED _
     Route: 055
     Dates: start: 1969
  25. ASPIRIN [Concomitant]
     Active Substance: ASPIRIN
     Dosage: 81 MG DAILY
     Route: 048
     Dates: start: 200001
  26. BUDESONIDE NASAL SPRAYASPIRIN [Concomitant]
     Dosage: 32
     Route: 045
     Dates: start: 2005
  27. ALLEGRA [Concomitant]
     Active Substance: FEXOFENADINE HYDROCHLORIDE
     Dosage: 30 MG AS NEEDED _
     Route: 048
     Dates: start: 2005
  28. MONTELUKAST [Concomitant]
     Active Substance: MONTELUKAST SODIUM
     Dosage: 10 MG
     Route: 048
     Dates: start: 2010
  29. BUMETANIDE [Concomitant]
     Active Substance: BUMETANIDE
     Dosage: 1 MG DAILY
     Route: 048
     Dates: start: 202009
  30. VITAMIN D3 [Concomitant]
     Active Substance: CHOLECALCIFEROL
     Dosage: 1000 OTHER UNIT DAILY
     Route: 048
     Dates: start: 201201
  31. CLOBETASOL [Concomitant]
     Active Substance: CLOBETASOL
     Dosage: 1 AS NEEDED
     Route: 061
     Dates: start: 201401
  32. HYDROXYZINE HYDROCHLORIDE [Concomitant]
     Active Substance: HYDROXYZINE HYDROCHLORIDE
     Dosage: L 25 MG _ AS NEEDED
     Route: 048
     Dates: start: 201001
  33. LORAZEPAM [Concomitant]
     Active Substance: LORAZEPAM
  34. SALBUTAMOL/TRIAMCINOLONE [Concomitant]
     Dosage: 1 OTHER UNIT 2 TIMES
     Route: 061
     Dates: start: 200701
  35. ATORVASTATIN [Concomitant]
     Active Substance: ATORVASTATIN
     Dosage: ORAL 80 MG
     Route: 048
     Dates: start: 20210827
  36. BRILINTA [Concomitant]
     Active Substance: TICAGRELOR
     Dosage: 1000 ML ONCE
     Route: 042
  37. INTEGRILIN [Concomitant]
     Active Substance: EPTIFIBATIDE
     Route: 042
     Dates: start: 20210827
  38. HEPARIN [Concomitant]
     Active Substance: HEPARIN SODIUM
     Dosage: 5000
     Route: 058
     Dates: start: 20210828
  39. LOSARTAN [Concomitant]
     Active Substance: LOSARTAN
     Dosage: L 25 MG DAILY
     Route: 048
  40. LABETALOL [Concomitant]
     Active Substance: LABETALOL\LABETALOL HYDROCHLORIDE
     Dosage: 10 MG
     Route: 042
  41. COLACE [Concomitant]
     Active Substance: DOCUSATE SODIUM
     Dosage: 100 MG
     Route: 048
  42. MIRALAX [Concomitant]
     Active Substance: POLYETHYLENE GLYCOL 3350
     Dosage: L 17 MG
     Route: 048
     Dates: start: 20210629
  43. ZOFRAN [Concomitant]
     Active Substance: ONDANSETRON HYDROCHLORIDE
     Dosage: 8 MG
     Route: 048
     Dates: start: 20210823
  44. PROMETHAZINE [Concomitant]
     Active Substance: PROMETHAZINE HYDROCHLORIDE
     Dosage: 12.5 MG
     Route: 048
  45. METHYLPREDNISOLONE [Concomitant]
     Active Substance: METHYLPREDNISOLONE
     Dosage: ORAL 4 MG
     Route: 048
     Dates: start: 20211202
  46. PREDNISONE [Concomitant]
     Active Substance: PREDNISONE
     Dosage: ORAL 20 MG
     Route: 048
     Dates: start: 20220119

REACTIONS (1)
  - Drug-induced liver injury [Unknown]

NARRATIVE: CASE EVENT DATE: 20220105
